FAERS Safety Report 9248099 (Version 1)
Quarter: 2013Q1

REPORT INFORMATION
  Report Type: Spontaneous
  Country: US (occurrence: None)
  Receive Date: 20130305
  Receipt Date: 20130305
  Transmission Date: 20140127
  Serious: Yes (Other)
  Sender: FDA-Public Use
  Company Number: 163-21880-12060743

PATIENT
  Age: 64 Year
  Sex: Female

DRUGS (7)
  1. REVLIMID [Suspect]
     Indication: PLASMA CELL MYELOMA
     Dosage: 1 IN 1 D
     Route: 048
     Dates: start: 200901
  2. ZOMETA (ZOLEDRONIC ACID) (INJECTION) [Concomitant]
  3. ASPIRIN (ACETYLSALICYLIC ACID) (CHEWABLE TABLET) [Concomitant]
  4. MULTI CAP FOR HER (MULTIVITAMINS) (CAPSULES) [Concomitant]
  5. VITAMIN D (ERGOCALCIFEROL) (2000 IU (INTERNATIONAL UNIT), CAPSULES) [Concomitant]
  6. CALCIUM (CALCIUM) (TABLETS) [Concomitant]
  7. CHOLESTYRAMIN (COLESTYRAMINE) (POWDER) [Concomitant]

REACTIONS (2)
  - Dehydration [None]
  - Diarrhoea [None]
